FAERS Safety Report 14631343 (Version 1)
Quarter: 2018Q1

REPORT INFORMATION
  Report Type: Spontaneous
  Country: FR (occurrence: FR)
  Receive Date: 20180313
  Receipt Date: 20180313
  Transmission Date: 20180509
  Serious: Yes (Hospitalization)
  Sender: FDA-Public Use
  Company Number: FR-PFIZER INC-2018099425

PATIENT
  Age: 52 Year
  Sex: Female

DRUGS (2)
  1. ZECLAR [Concomitant]
     Active Substance: CLARITHROMYCIN
     Indication: SKIN INFECTION
     Dosage: UNK
     Route: 042
     Dates: start: 20180126
  2. TYGACIL [Suspect]
     Active Substance: TIGECYCLINE
     Dosage: UNK
     Route: 042
     Dates: start: 20180126, end: 20180131

REACTIONS (2)
  - Food intolerance [Recovered/Resolved]
  - Nausea [Recovered/Resolved]

NARRATIVE: CASE EVENT DATE: 20180128
